FAERS Safety Report 22255193 (Version 10)
Quarter: 2025Q1

REPORT INFORMATION
  Report Type: Report from Study
  Country: US (occurrence: US)
  Receive Date: 20230426
  Receipt Date: 20250310
  Transmission Date: 20250409
  Serious: Yes (Hospitalization, Other)
  Sender: TAKEDA
  Company Number: US-TAKEDA-2023TUS040708

PATIENT
  Age: 61 Year
  Sex: Male
  Weight: 63.95 kg

DRUGS (20)
  1. TEDUGLUTIDE [Suspect]
     Active Substance: TEDUGLUTIDE
     Indication: Short-bowel syndrome
     Dosage: 0.5 MILLIGRAM/KILOGRAM, QD
  2. TEDUGLUTIDE [Suspect]
     Active Substance: TEDUGLUTIDE
     Dosage: 1.6 MILLIGRAM, QD
  3. TEDUGLUTIDE [Suspect]
     Active Substance: TEDUGLUTIDE
     Dosage: 1.6 MILLIGRAM, QD
  4. TEDUGLUTIDE [Suspect]
     Active Substance: TEDUGLUTIDE
     Dosage: 1.6 MILLIGRAM, QD
  5. TEDUGLUTIDE [Suspect]
     Active Substance: TEDUGLUTIDE
     Dosage: 1.6 MILLIGRAM, QD
  6. TEDUGLUTIDE [Suspect]
     Active Substance: TEDUGLUTIDE
     Dosage: 1.6 MILLIGRAM, QD
  7. TEDUGLUTIDE [Suspect]
     Active Substance: TEDUGLUTIDE
     Dosage: 1.6 MILLIGRAM, QD
  8. TEDUGLUTIDE [Suspect]
     Active Substance: TEDUGLUTIDE
     Dosage: 0.5 MILLIGRAM/KILOGRAM, QD
  9. TEDUGLUTIDE [Suspect]
     Active Substance: TEDUGLUTIDE
     Dosage: 1.6 MILLIGRAM, QD
  10. OPIUM [Suspect]
     Active Substance: OPIUM
     Indication: Diarrhoea
  11. OPIUM [Suspect]
     Active Substance: OPIUM
     Indication: Short-bowel syndrome
  12. ATROPINE\DIPHENOXYLATE [Concomitant]
     Active Substance: ATROPINE\DIPHENOXYLATE
  13. TAMSULOSIN HYDROCHLORIDE [Concomitant]
     Active Substance: TAMSULOSIN HYDROCHLORIDE
  14. MIDODRINE HYDROCHLORIDE [Concomitant]
     Active Substance: MIDODRINE HYDROCHLORIDE
  15. ASPIRIN [Concomitant]
     Active Substance: ASPIRIN
  16. CALCITRIOL [Concomitant]
     Active Substance: CALCITRIOL
  17. SALINE [Concomitant]
     Active Substance: SODIUM CHLORIDE
  18. OPIUM TINCTURE [Concomitant]
     Active Substance: MORPHINE
     Indication: Short-bowel syndrome
  19. OPIUM TINCTURE [Concomitant]
     Active Substance: MORPHINE
     Indication: Diarrhoea
  20. AMLODIPINE BESYLATE [Concomitant]
     Active Substance: AMLODIPINE BESYLATE

REACTIONS (13)
  - Renal failure [Unknown]
  - Blood pressure increased [Unknown]
  - Gastrointestinal stoma output decreased [Unknown]
  - COVID-19 [Recovered/Resolved]
  - Weight decreased [Unknown]
  - Malaise [Unknown]
  - Fatigue [Unknown]
  - Hunger [Recovered/Resolved]
  - Diarrhoea [Unknown]
  - Influenza [Unknown]
  - Nausea [Unknown]
  - Gastrointestinal stoma complication [Unknown]
  - Vomiting [Unknown]

NARRATIVE: CASE EVENT DATE: 20190805
